FAERS Safety Report 7869868 (Version 5)
Quarter: 2012Q4

REPORT INFORMATION
  Report Type: 
  Country: US (occurrence: US)
  Receive Date: 20110324
  Receipt Date: 20121101
  Transmission Date: 20130627
  Serious: Yes (Hospitalization, Other)
  Sender: FDA-Public Use
  Company Number: US-ROCHE-571726

PATIENT
  Age: 29 None
  Sex: Male
  Weight: 77.6 kg

DRUGS (5)
  1. ACCUTANE [Suspect]
     Indication: ACNE
     Route: 065
     Dates: start: 19980417, end: 19980525
  2. ACCUTANE [Suspect]
     Dosage: 1 AND 2 ALTERNATING DAYS
     Route: 065
     Dates: start: 19980526, end: 19981113
  3. COLAZAL [Concomitant]
  4. ROWASA [Concomitant]
     Route: 065
  5. LIALDA [Concomitant]

REACTIONS (10)
  - Inflammatory bowel disease [Not Recovered/Not Resolved]
  - Colitis [Not Recovered/Not Resolved]
  - Depression [Unknown]
  - Proctitis [Unknown]
  - Rectal polyp [Unknown]
  - Suicidal ideation [Unknown]
  - Epistaxis [Unknown]
  - Subcutaneous abscess [Unknown]
  - Abscess [Unknown]
  - Clostridium difficile infection [Recovered/Resolved]
